FAERS Safety Report 4279153-4 (Version None)
Quarter: 2004Q1

REPORT INFORMATION
  Report Type: 
  Country: None (occurrence: None)
  Receive Date: 20040126
  Receipt Date: 20040126
  Transmission Date: 20041129
  Serious: Yes (Life-Threatening, Hospitalization)
  Sender: FDA-Public Use
  Company Number: None

PATIENT
  Age: 81 Year
  Sex: Male
  Weight: 73 kg

DRUGS (1)
  1. MS CONTIN [Suspect]
     Dosage: 45MG  Q8H ORAL
     Route: 048
     Dates: start: 20031224, end: 20031225

REACTIONS (4)
  - HYPOXIA [None]
  - MEDICATION ERROR [None]
  - PNEUMONIA ASPIRATION [None]
  - SEDATION [None]
